FAERS Safety Report 7780104-6 (Version None)
Quarter: 2011Q3

REPORT INFORMATION
  Report Type: 
  Country: None (occurrence: None)
  Receive Date: 20110927
  Receipt Date: 20110920
  Transmission Date: 20111222
  Serious: Yes (Life-Threatening, Hospitalization)
  Sender: FDA-Public Use
  Company Number: JP-AMGEN-JPNSP2011038310

PATIENT
  Age: 61 Year
  Sex: Female
  Weight: 42.9 kg

DRUGS (12)
  1. ROXATIDINE ACETATE HCL [Concomitant]
     Indication: GASTRIC ULCER
     Dosage: 75 MG, 2X/DAY
     Route: 048
  2. JUVELA NICOTINATE [Concomitant]
     Indication: VITAMIN E DEFICIENCY
     Dosage: 100 MG, 3X/DAY
     Route: 048
  3. MICARDIS [Concomitant]
     Indication: HYPERTENSION
     Dosage: 20 MG, 1X/DAY
     Route: 048
  4. FLUCAM [Concomitant]
     Indication: RHEUMATOID ARTHRITIS
     Dosage: 13.5 MG, 2X/DAY
     Route: 048
  5. ENBREL [Suspect]
     Dosage: SYRINGE, 25 MG, 2X/WEEK
     Dates: start: 20081031, end: 20110601
  6. PREDNISOLONE [Suspect]
     Indication: RHEUMATOID ARTHRITIS
     Dosage: 5 MG, 1X/DAY
     Route: 048
  7. SELBEX [Concomitant]
     Indication: GASTRIC ULCER
     Dosage: 50 MG, 3X/DAY
     Route: 048
  8. ENBREL [Suspect]
     Indication: RHEUMATOID ARTHRITIS
     Dosage: LYOPHILIZED FORMULATION, 25 MG, 2X/WEEK
     Route: 058
     Dates: start: 20050811, end: 20081028
  9. CLARITHROMYCIN [Concomitant]
     Indication: INFECTION PROPHYLAXIS
     Dosage: 200 MG, 1X/DAY
     Route: 048
     Dates: end: 20110628
  10. ONE-ALPHA [Concomitant]
     Indication: OSTEOPOROSIS
     Dosage: 0.5 UG, 1X/DAY
     Route: 048
  11. BONALEN                            /01220302/ [Concomitant]
     Indication: OSTEOPOROSIS
     Dosage: 35 MG, WEEKLY
     Route: 048
  12. RIMATIL [Concomitant]
     Indication: RHEUMATOID ARTHRITIS
     Dosage: 200 MG, 1X/DAY
     Route: 048

REACTIONS (2)
  - PLEURAL EFFUSION [None]
  - INFECTIOUS PLEURAL EFFUSION [None]
